FAERS Safety Report 8094128-5 (Version None)
Quarter: 2012Q1

REPORT INFORMATION
  Report Type: 
  Country: None (occurrence: None)
  Receive Date: 20120130
  Receipt Date: 20120130
  Transmission Date: 20120608
  Serious: Yes (Death)
  Sender: FDA-Public Use
  Company Number: None

PATIENT
  Age: 66 Year
  Sex: Male
  Weight: 98.18 kg

DRUGS (4)
  1. CARBOPLATIN [Suspect]
     Indication: LUNG NEOPLASM MALIGNANT
     Dosage: 616MG
     Route: 041
     Dates: start: 20111110, end: 20120127
  2. DOCETAXEL [Concomitant]
     Dosage: 165MG
     Route: 041
     Dates: start: 20120127, end: 20120127
  3. DECADRON [Concomitant]
     Route: 042
  4. ONDANSETRON HCL [Concomitant]
     Route: 042

REACTIONS (1)
  - CARDIO-RESPIRATORY ARREST [None]
